FAERS Safety Report 23749164 (Version 1)
Quarter: 2024Q2

REPORT INFORMATION
  Report Type: Spontaneous
  Country: CN (occurrence: CN)
  Receive Date: 20240416
  Receipt Date: 20240416
  Transmission Date: 20240716
  Serious: Yes (Other)
  Sender: FDA-Public Use
  Company Number: CN-PFIZER INC-PV202400048156

PATIENT
  Age: 12 Year
  Sex: Female
  Weight: 61 kg

DRUGS (2)
  1. CYTARABINE [Suspect]
     Active Substance: CYTARABINE
     Indication: Acute myeloid leukaemia
     Dosage: 0.1 G, 1X/DAY
     Route: 041
     Dates: start: 20240218, end: 20240224
  2. OMACETAXINE MEPESUCCINATE [Concomitant]
     Active Substance: OMACETAXINE MEPESUCCINATE
     Indication: Acute myeloid leukaemia
     Dosage: 2.34 ML, 1X/DAY
     Route: 041
     Dates: start: 20240218, end: 20240221

REACTIONS (6)
  - Nausea [Recovering/Resolving]
  - Vomiting [Recovering/Resolving]
  - Hypoaesthesia [Recovering/Resolving]
  - Pain [Recovering/Resolving]
  - Abdominal distension [Recovering/Resolving]
  - Back pain [Recovering/Resolving]

NARRATIVE: CASE EVENT DATE: 20240218
